FAERS Safety Report 6611975-4 (Version None)
Quarter: 2010Q1

REPORT INFORMATION
  Report Type: 
  Country: None (occurrence: None)
  Receive Date: 20100302
  Receipt Date: 20100302
  Transmission Date: 20100710
  Serious: No
  Sender: FDA-Public Use
  Company Number: None

PATIENT
  Sex: Male
  Weight: 114.6 kg

DRUGS (4)
  1. FLUOROURACIL [Suspect]
     Dosage: 16250 MG
     Dates: end: 20091222
  2. BEVACIZUMAB (RHUMAB VEGF) [Suspect]
     Dosage: 1800 MG
     Dates: end: 20091222
  3. LEUCOVORIN CALCIUM [Suspect]
     Dosage: 1900 MG
     Dates: end: 20091222
  4. ELOXATIN [Suspect]
     Dosage: 400 MG
     Dates: end: 20091208

REACTIONS (6)
  - ASTHENIA [None]
  - BLOOD PRESSURE INCREASED [None]
  - DEHYDRATION [None]
  - DIARRHOEA [None]
  - DIZZINESS [None]
  - NAUSEA [None]
